FAERS Safety Report 9471877 (Version 7)
Quarter: 2014Q1

REPORT INFORMATION
  Report Type: Spontaneous
  Country: CA (occurrence: CA)
  Receive Date: 20130823
  Receipt Date: 20140113
  Transmission Date: 20141002
  Serious: Yes (Hospitalization, Other)
  Sender: FDA-Public Use
  Company Number: CA-ROCHE-1260151

PATIENT
  Age: 35 Year
  Sex: Female

DRUGS (9)
  1. XOLAIR [Suspect]
     Indication: ASTHMA
     Route: 058
     Dates: start: 20121112
  2. XOLAIR [Suspect]
     Route: 058
     Dates: start: 20130416
  3. XOLAIR [Suspect]
     Route: 058
     Dates: start: 20130501
  4. XOLAIR [Suspect]
     Route: 058
     Dates: start: 20131111
  5. ADVAIR [Concomitant]
  6. ALVESCO [Concomitant]
  7. SINGULAIR [Concomitant]
  8. PREDNISONE [Concomitant]
  9. FLOVENT [Concomitant]

REACTIONS (16)
  - Lower limb fracture [Unknown]
  - Eye pruritus [Unknown]
  - Sinusitis [Unknown]
  - Bronchitis [Unknown]
  - Fall [Unknown]
  - Malaise [Unknown]
  - Seasonal allergy [Unknown]
  - Hypersensitivity [Unknown]
  - Cough [Unknown]
  - Influenza [Recovered/Resolved]
  - Throat irritation [Unknown]
  - Asthma [Unknown]
  - Nasopharyngitis [Unknown]
  - Chills [Unknown]
  - Hot flush [Unknown]
  - Asthenia [Unknown]
